FAERS Safety Report 15394109 (Version 3)
Quarter: 2018Q4

REPORT INFORMATION
  Report Type: Report from Study
  Country: US (occurrence: US)
  Receive Date: 20180918
  Receipt Date: 20181030
  Transmission Date: 20190204
  Serious: Yes (Hospitalization)
  Sender: FDA-Public Use
  Company Number: US-UCBSA-2018041321

PATIENT
  Age: 78 Year
  Sex: Male

DRUGS (1)
  1. BRIVARACETAM [Suspect]
     Active Substance: BRIVARACETAM
     Indication: PARTIAL SEIZURES
     Dosage: 50 MG, 2X/DAY (BID)
     Route: 048
     Dates: start: 20170613, end: 20181008

REACTIONS (1)
  - Seizure [Not Recovered/Not Resolved]

NARRATIVE: CASE EVENT DATE: 20180904
